FAERS Safety Report 5907716-6 (Version None)
Quarter: 2008Q4

REPORT INFORMATION
  Report Type: 
  Country: None (occurrence: None)
  Receive Date: 20081003
  Receipt Date: 19950405
  Transmission Date: 20090506
  Serious: Yes (Death, Hospitalization)
  Sender: FDA-Public Use
  Company Number: US-ROCHE-950200582001

PATIENT
  Age: 72 Year
  Sex: Male
  Weight: 91 kg

DRUGS (4)
  1. INTERFERON ALFA-2A [Suspect]
     Dosage: 3 TIMES PER WEEK PER CYCLE
     Route: 058
     Dates: start: 19950123, end: 19950320
  2. FLUOROURACIL [Suspect]
     Dosage: 118 MG, CONTINUOUS INTRAVENOUS INFUSION DAY 1-5 PER CYCLE
     Route: 042
     Dates: start: 19950123
  3. MITOMYCIN [Suspect]
     Dosage: 10.6 MG IV ONCE
     Route: 042
     Dates: start: 19950123
  4. REGLAN [Concomitant]
     Indication: HIATUS HERNIA
     Route: 048

REACTIONS (1)
  - DEATH [None]
